FAERS Safety Report 6733897-0 (Version None)
Quarter: 2010Q2

REPORT INFORMATION
  Report Type: 
  Country: None (occurrence: None)
  Receive Date: 20100520
  Receipt Date: 20100512
  Transmission Date: 20101027
  Serious: Yes (Other)
  Sender: FDA-Public Use
  Company Number: ES-ROCHE-701720

PATIENT
  Age: 13 Year
  Sex: Female

DRUGS (1)
  1. ROACTEMRA [Suspect]
     Route: 065

REACTIONS (2)
  - HYPOACUSIS [None]
  - OTITIS MEDIA [None]
